FAERS Safety Report 8161606-X (Version None)
Quarter: 2012Q1

REPORT INFORMATION
  Report Type: 
  Country: None (occurrence: None)
  Receive Date: 20120224
  Receipt Date: 20120216
  Transmission Date: 20120608
  Serious: Yes (Other)
  Sender: FDA-Public Use
  Company Number: US-CELGENEUS-163-20785-12022079

PATIENT
  Sex: Female

DRUGS (9)
  1. MAGNESIUM OXIDE [Concomitant]
     Route: 065
  2. THALOMID [Suspect]
     Dosage: 50 MILLIGRAM
     Route: 048
     Dates: start: 20120101
  3. PROCHLORPERAZINE MALEATE [Concomitant]
     Route: 065
  4. PRENATAL 19 [Concomitant]
     Route: 065
  5. DIPHENOXYLATE HCL + ATROPINE SULFATE [Concomitant]
     Route: 065
  6. CYPROHEPTADINE HCL [Concomitant]
     Route: 065
  7. OSCAL 500/200 D-3 [Concomitant]
     Route: 065
  8. DEXAMETHASONE [Concomitant]
     Route: 065
  9. POTASSIUM CHLORIDE CR [Concomitant]
     Route: 065

REACTIONS (1)
  - CARDIAC DISORDER [None]
